FAERS Safety Report 5329856-5 (Version None)
Quarter: 2007Q2

REPORT INFORMATION
  Report Type: 
  Country: None (occurrence: None)
  Receive Date: 20070521
  Receipt Date: 20070517
  Transmission Date: 20071010
  Serious: Yes (Other)
  Sender: FDA-Public Use
  Company Number: GB-BRISTOL-MYERS SQUIBB COMPANY-13784426

PATIENT
  Age: 55 Year
  Sex: Female
  Weight: 77 kg

DRUGS (5)
  1. CYTOXAN [Suspect]
     Indication: BREAST CANCER
     Route: 042
  2. METHOTREXATE [Suspect]
     Indication: BREAST CANCER
     Route: 042
  3. NEULASTA [Suspect]
     Indication: CHEMOTHERAPY
     Dates: start: 20061201
  4. FLUOROURACIL [Suspect]
     Indication: BREAST CANCER
  5. EPIRUBICIN [Suspect]
     Indication: BREAST CANCER

REACTIONS (1)
  - DYSPNOEA [None]
